FAERS Safety Report 13512474 (Version 1)
Quarter: 2017Q2

REPORT INFORMATION
  Report Type: Spontaneous
  Country: US (occurrence: US)
  Receive Date: 20170504
  Receipt Date: 20170504
  Transmission Date: 20170830
  Serious: Yes (Hospitalization)
  Sender: FDA-Public Use
  Company Number: US-ROCHE-1913793

PATIENT
  Age: 62 Year
  Sex: Male
  Weight: 113.5 kg

DRUGS (2)
  1. RITUXAN [Suspect]
     Active Substance: RITUXIMAB
     Indication: RHEUMATOID ARTHRITIS
     Route: 042
     Dates: start: 20170130, end: 20170204
  2. ALLOPURINOL. [Concomitant]
     Active Substance: ALLOPURINOL
     Indication: GOUT
     Route: 065

REACTIONS (7)
  - Pneumonia [Recovered/Resolved]
  - Gait disturbance [Unknown]
  - Chronic obstructive pulmonary disease [Recovered/Resolved]
  - Pyrexia [Recovered/Resolved]
  - Confusional state [Unknown]
  - Dyspnoea [Unknown]
  - Visual impairment [Unknown]

NARRATIVE: CASE EVENT DATE: 20170221
